FAERS Safety Report 16218793 (Version 1)
Quarter: 2019Q2

REPORT INFORMATION
  Report Type: Report from Study
  Country: US (occurrence: US)
  Receive Date: 20190419
  Receipt Date: 20190419
  Transmission Date: 20190711
  Serious: No
  Sender: FDA-Public Use
  Company Number: PHEH2019US016293

PATIENT
  Age: 33 Year
  Sex: Male

DRUGS (1)
  1. COSENTYX [Suspect]
     Active Substance: SECUKINUMAB
     Indication: PSORIASIS
     Dosage: 300 MG, QW (WEEK 0,1,2,3,4, THEN EVERY 4 WEEKS THEREAFTER)
     Route: 058

REACTIONS (4)
  - Hot flush [Unknown]
  - Diarrhoea [Unknown]
  - Flushing [Unknown]
  - Insomnia [Unknown]
